FAERS Safety Report 9596190 (Version 2)
Quarter: 2014Q1

REPORT INFORMATION
  Report Type: Spontaneous
  Country: CO (occurrence: CO)
  Receive Date: 20131004
  Receipt Date: 20140206
  Transmission Date: 20141002
  Serious: Yes (Death, Other)
  Sender: FDA-Public Use
  Company Number: CO-JNJFOC-20130917730

PATIENT
  Age: 77 Year
  Sex: Male
  Weight: 60 kg

DRUGS (2)
  1. ZYTIGA [Suspect]
     Indication: PROSTATE CANCER
     Dosage: 250 MG X 4 TABLETS
     Route: 048
     Dates: start: 201305, end: 201309
  2. PREDNISOLONE [Concomitant]
     Route: 048
     Dates: start: 201305

REACTIONS (2)
  - Death [Fatal]
  - Inappropriate schedule of drug administration [Not Recovered/Not Resolved]
